FAERS Safety Report 5728212-5 (Version None)
Quarter: 2008Q2

REPORT INFORMATION
  Report Type: 
  Country: None (occurrence: None)
  Receive Date: 20080506
  Receipt Date: 20080425
  Transmission Date: 20081010
  Serious: Yes (Other)
  Sender: FDA-Public Use
  Company Number: FR-BAYER-200816601GPV

PATIENT
  Age: 42 Year
  Sex: Female

DRUGS (1)
  1. MIRENA [Suspect]
     Indication: MENORRHAGIA
     Dosage: TOTAL DAILY DOSE: 20 ?G
     Route: 015
     Dates: end: 20080401

REACTIONS (1)
  - OTOSCLEROSIS [None]
